FAERS Safety Report 8401521-7 (Version None)
Quarter: 2012Q2

REPORT INFORMATION
  Report Type: 
  Country: None (occurrence: None)
  Receive Date: 20120530
  Receipt Date: 20120530
  Transmission Date: 20120825
  Serious: Yes (Life-Threatening, Other)
  Sender: FDA-Public Use
  Company Number: None

PATIENT
  Age: 29 Year
  Sex: Female
  Weight: 89.8122 kg

DRUGS (3)
  1. MULTI-VITAMIN [Concomitant]
  2. THERAFLU WARMING -SC+C- DAYTIME NOVARTIS [Suspect]
     Indication: INFLUENZA LIKE ILLNESS
     Dosage: 2 TABLESPOONS 6 TIMES A DAY PO
     Route: 048
     Dates: start: 20120116, end: 20120116
  3. ASCORBIC ACID [Concomitant]

REACTIONS (1)
  - SUICIDAL IDEATION [None]
